FAERS Safety Report 25184094 (Version 1)
Quarter: 2025Q2

REPORT INFORMATION
  Report Type: Spontaneous
  Country: US (occurrence: None)
  Receive Date: 20250410
  Receipt Date: 20250410
  Transmission Date: 20250716
  Serious: Yes (Death)
  Sender: FDA-CTU
  Company Number: None

PATIENT
  Sex: Male

DRUGS (6)
  1. ACTEMRA ACTPEN [Suspect]
     Active Substance: TOCILIZUMAB
     Indication: Cytokine release syndrome
     Route: 058
     Dates: start: 20241015
  2. CELEBREX [Concomitant]
     Active Substance: CELECOXIB
  3. EVEROLIMUS [Concomitant]
     Active Substance: EVEROLIMUS
  4. LENVIMA [Concomitant]
     Active Substance: LENVATINIB
  5. OPDIVO [Concomitant]
     Active Substance: NIVOLUMAB
  6. THALOMID [Concomitant]
     Active Substance: THALIDOMIDE

REACTIONS (1)
  - Death [None]
